FAERS Safety Report 5505823-3 (Version None)
Quarter: 2007Q4

REPORT INFORMATION
  Report Type: 
  Country: None (occurrence: None)
  Receive Date: 20071102
  Receipt Date: 20071023
  Transmission Date: 20080405
  Serious: Yes (Other)
  Sender: FDA-Public Use
  Company Number: US-PFIZER INC-2007089421

PATIENT
  Sex: Female
  Weight: 54.4 kg

DRUGS (8)
  1. LYRICA [Suspect]
     Indication: PARAESTHESIA
     Route: 048
  2. CYMBALTA [Suspect]
     Indication: PARAESTHESIA
     Route: 048
  3. METFORMIN [Concomitant]
     Indication: DIABETES MELLITUS
  4. VITAMIN B-12 [Concomitant]
  5. MIRAPEX [Concomitant]
     Indication: RESTLESS LEGS SYNDROME
  6. NEXIUM [Concomitant]
  7. TYLENOL (CAPLET) [Concomitant]
     Dosage: FREQ:AS NEEDED
  8. ALEVE [Concomitant]
     Dosage: FREQ:AS NEEDED

REACTIONS (5)
  - OEDEMA PERIPHERAL [None]
  - PAIN [None]
  - PARAESTHESIA [None]
  - SOMNOLENCE [None]
  - WEIGHT INCREASED [None]
